FAERS Safety Report 6812119-6 (Version None)
Quarter: 2010Q3

REPORT INFORMATION
  Report Type: 
  Country: None (occurrence: None)
  Receive Date: 20100701
  Receipt Date: 20090928
  Transmission Date: 20110219
  Serious: No
  Sender: FDA-Public Use
  Company Number: US-ABBOTT-09P-163-0599983-00

PATIENT
  Sex: Female

DRUGS (1)
  1. RITONAVIR [Suspect]
     Indication: HIV INFECTION
     Dates: start: 20020101, end: 20090101

REACTIONS (1)
  - DRY SKIN [None]
